FAERS Safety Report 23056366 (Version 1)
Quarter: 2023Q4

REPORT INFORMATION
  Report Type: Spontaneous
  Country: GB (occurrence: GB)
  Receive Date: 20231011
  Receipt Date: 20231011
  Transmission Date: 20240109
  Serious: Yes (Other)
  Sender: FDA-Public Use
  Company Number: None

PATIENT
  Age: 44 Year
  Sex: Female
  Weight: 59 kg

DRUGS (1)
  1. DOTAREM [Suspect]
     Active Substance: GADOTERATE MEGLUMINE
     Indication: Magnetic resonance imaging
     Route: 051
     Dates: start: 20220520, end: 20220520

REACTIONS (4)
  - Contrast media reaction [Recovered/Resolved]
  - Hot flush [Unknown]
  - Dysgeusia [Unknown]
  - Erythema [Unknown]

NARRATIVE: CASE EVENT DATE: 20220520
